FAERS Safety Report 8131329-1 (Version None)
Quarter: 2012Q1

REPORT INFORMATION
  Report Type: 
  Country: None (occurrence: None)
  Receive Date: 20120210
  Receipt Date: 20120210
  Transmission Date: 20120608
  Serious: Yes (Life-Threatening, Hospitalization)
  Sender: FDA-Public Use
  Company Number: None

PATIENT
  Age: 78 Year
  Sex: Male
  Weight: 114.2 kg

DRUGS (2)
  1. TOLMETIN SODIUM [Suspect]
     Indication: PAIN
     Dosage: 400 MG TID PO
     Route: 048
     Dates: start: 20010307, end: 20100502
  2. IBUPROFEN [Suspect]
     Dosage: 400 MG TID PO
     Route: 048
     Dates: start: 20100430, end: 20100502

REACTIONS (4)
  - EPISTAXIS [None]
  - FATIGUE [None]
  - GASTROINTESTINAL HAEMORRHAGE [None]
  - HAEMATEMESIS [None]
